FAERS Safety Report 7283598-8 (Version None)
Quarter: 2011Q1

REPORT INFORMATION
  Report Type: 
  Country: None (occurrence: None)
  Receive Date: 20110209
  Receipt Date: 20110203
  Transmission Date: 20110831
  Serious: Yes (Other)
  Sender: FDA-Public Use
  Company Number: A0912534A

PATIENT
  Sex: Female

DRUGS (3)
  1. CELEXA [Concomitant]
  2. GEODON [Concomitant]
  3. LAMICTAL [Suspect]
     Dosage: 100MG PER DAY
     Dates: start: 20100101

REACTIONS (3)
  - BRAIN OPERATION [None]
  - VASCULAR OCCLUSION [None]
  - NERVOUS SYSTEM DISORDER [None]
